FAERS Safety Report 25642650 (Version 2)
Quarter: 2025Q3

REPORT INFORMATION
  Report Type: Report from Study
  Country: CA (occurrence: CA)
  Receive Date: 20250805
  Receipt Date: 20250812
  Transmission Date: 20251021
  Serious: Yes (Other)
  Sender: SAMSUNG BIOEPIS
  Company Number: CA-SAMSUNG BIOEPIS-SB-2025-26169

PATIENT
  Age: 88 Year
  Sex: Female
  Weight: 51 kg

DRUGS (2)
  1. RENFLEXIS [Suspect]
     Active Substance: INFLIXIMAB-ABDA
     Indication: Psoriatic arthropathy
     Route: 042
     Dates: start: 20230112
  2. RENFLEXIS [Suspect]
     Active Substance: INFLIXIMAB-ABDA
     Indication: Psoriasis

REACTIONS (7)
  - Atrial fibrillation [Unknown]
  - Urinary tract infection [Unknown]
  - Chills [Unknown]
  - Hyperhidrosis [Unknown]
  - Skin discolouration [Unknown]
  - Arthropod bite [Unknown]
  - Off label use [Unknown]
